FAERS Safety Report 8244671-0 (Version None)
Quarter: 2012Q1

REPORT INFORMATION
  Report Type: 
  Country: None (occurrence: None)
  Receive Date: 20120329
  Receipt Date: 20120306
  Transmission Date: 20120608
  Serious: No
  Sender: FDA-Public Use
  Company Number: US-MYLANLABS-2012S1000644

PATIENT
  Age: 59 Year
  Sex: Male

DRUGS (24)
  1. TESTOSTERONE [Concomitant]
     Indication: BLOOD TESTOSTERONE DECREASED
     Route: 030
     Dates: start: 20090101
  2. MIRTAZAPINE [Concomitant]
     Indication: INSOMNIA
     Route: 048
  3. MAXALT [Concomitant]
  4. PROVIGIL [Concomitant]
  5. MULTI-VITAMIN [Concomitant]
  6. FROVA [Concomitant]
  7. OXYCODONE HCL [Concomitant]
     Indication: ARTHRALGIA
     Route: 048
  8. WELLBUTRIN [Concomitant]
     Indication: FEELING ABNORMAL
     Route: 048
  9. PANTOPRAZOLE [Concomitant]
     Indication: ABDOMINAL PAIN UPPER
     Dates: start: 20100101
  10. KLONOPIN [Concomitant]
     Indication: INSOMNIA
     Route: 048
  11. FENTANYL-100 [Suspect]
     Indication: ARTHRALGIA
     Dosage: CHANGED Q48H
     Route: 062
     Dates: start: 20060101
  12. FENTANYL-100 [Suspect]
     Dosage: CHANGED Q48H
     Route: 062
     Dates: start: 20060101
  13. FENOFIBRATE [Concomitant]
     Indication: BLOOD CHOLESTEROL INCREASED
     Route: 048
     Dates: start: 20090101
  14. FISH OIL [Concomitant]
  15. RELPAX [Concomitant]
  16. CITALOPRAM HYDROBROMIDE [Concomitant]
     Indication: ANXIETY
     Route: 048
  17. SYNTHROID [Concomitant]
     Indication: HYPOTHYROIDISM
     Route: 048
  18. VITAMIN D [Concomitant]
  19. GABAPENTIN [Concomitant]
     Indication: PAIN
     Route: 048
  20. METHADONE HCL [Concomitant]
     Indication: PAIN
     Route: 048
  21. ZYPREXA [Concomitant]
     Indication: INSOMNIA
     Route: 048
  22. FLEXAMIN [Concomitant]
  23. FENTANYL-100 [Suspect]
     Dosage: CHANGED Q48H
     Route: 062
     Dates: start: 20060101
  24. SORIATANE [Concomitant]

REACTIONS (5)
  - HEADACHE [None]
  - DRUG INEFFECTIVE [None]
  - INFLUENZA LIKE ILLNESS [None]
  - DRUG WITHDRAWAL SYNDROME [None]
  - ARTHRALGIA [None]
